FAERS Safety Report 9219122 (Version 1)
Quarter: 2013Q1

REPORT INFORMATION
  Report Type: Spontaneous
  Country: US (occurrence: None)
  Receive Date: 20120830
  Receipt Date: 20120830
  Transmission Date: 20140127
  Serious: Yes (Other)
  Sender: FDA-Public Use
  Company Number: PHEH2012US005969

PATIENT
  Age: 57 Year
  Sex: Male

DRUGS (12)
  1. SANDOSTATIN LAR DEPOT (OCTREOTIDE WITH POLY (D L-LACTIDE-CO-GLYCOLIDE)) UNKNOWN [Suspect]
     Indication: ACROMEGALY
     Dosage: Q 28 DAYS?
     Route: 030
     Dates: start: 199908
  2. SIMVASTATIN (SIMVASTATIN) [Concomitant]
  3. SYNTHYROID (LEVOTHYROXINE SODIUM) [Concomitant]
  4. LISINOPRIL (LISINOPRIL) [Concomitant]
  5. ZETIA (EZETIMIBE) [Concomitant]
  6. TESTOSTERONE CIPIONATE (TESTOSTERONE CIPIONATE) [Concomitant]
  7. BUSPAR (BUSPIRONE HYDROCHLORIDE) [Concomitant]
  8. ASPIRIN (ACETYLSALICYLIC ACID) [Concomitant]
  9. AMOTIDINE (FAMOTIDINE) [Concomitant]
  10. KLONOPIN (CLONAZEPAM) (TABLETS) [Concomitant]
  11. UROCIT-K (POTASSIUM CITRATE) [Concomitant]
  12. BACLOFEN (BACLOFEN) [Concomitant]

REACTIONS (5)
  - Diabetes mellitus [None]
  - Foot deformity [None]
  - Prognathism [None]
  - Head deformity [None]
  - Hypercholesterolaemia [None]
